FAERS Safety Report 8832942 (Version 1)
Quarter: 2012Q4

REPORT INFORMATION
  Report Type: 
  Country: DE (occurrence: DE)
  Receive Date: 20121010
  Receipt Date: 20121010
  Transmission Date: 20130627
  Serious: Yes (Other)
  Sender: FDA-Public Use
  Company Number: DE-UCBSA-068332

PATIENT
  Age: 46 Year
  Sex: Female
  Weight: 52 kg

DRUGS (2)
  1. EQUASYM RETARD [Suspect]
     Dosage: 30 MG CAPSULES, TOTAL: 360 MG, 1 DOSE, 12 CAPSULES
     Dates: start: 201209, end: 201209
  2. VOLTAREN [Suspect]
     Dosage: 75 MG TABLETS, TOTAL: 450 MG, 1 DOSE, 6 TABLETS
     Dates: start: 201209, end: 201209

REACTIONS (7)
  - Suicide attempt [Recovered/Resolved]
  - Intentional overdose [Recovered/Resolved]
  - Systolic hypertension [Recovered/Resolved]
  - Nausea [Recovered/Resolved]
  - Dry mouth [Recovered/Resolved]
  - Palpitations [Recovered/Resolved]
  - Headache [Recovered/Resolved]
